FAERS Safety Report 5490615-4 (Version None)
Quarter: 2007Q4

REPORT INFORMATION
  Report Type: 
  Country: None (occurrence: None)
  Receive Date: 20071019
  Receipt Date: 20071016
  Transmission Date: 20080405
  Serious: Yes (Death, Hospitalization)
  Sender: FDA-Public Use
  Company Number: PHHO2007BR17154

PATIENT
  Age: 71 Year
  Sex: Female

DRUGS (1)
  1. FORASEQ [Suspect]
     Indication: DYSPNOEA
     Dosage: 12/400 MCG BID
     Dates: start: 20070701

REACTIONS (8)
  - ASTHENIA [None]
  - COMA [None]
  - COUGH [None]
  - DEHYDRATION [None]
  - EMPHYSEMA [None]
  - HYPERGLYCAEMIA [None]
  - INFLUENZA [None]
  - RESPIRATORY DISORDER [None]
